FAERS Safety Report 14126380 (Version 2)
Quarter: 2017Q4

REPORT INFORMATION
  Report Type: Not Available
  Country: US (occurrence: US)
  Receive Date: 20171025
  Receipt Date: 20171208
  Transmission Date: 20180321
  Serious: Yes (Other)
  Sender: FDA-Public Use
  Company Number: US-NEUROCRINE BIOSCIENCES INC.-2017NBI01051

PATIENT
  Age: 67 Year
  Sex: Male

DRUGS (5)
  1. BENZTROPINE [Concomitant]
     Active Substance: BENZTROPINE
     Indication: SCHIZOPHRENIA
  2. HALDOL DECANOATE [Concomitant]
     Active Substance: HALOPERIDOL DECANOATE
     Indication: SCHIZOPHRENIA
  3. INGREZZA [Suspect]
     Active Substance: VALBENAZINE
     Indication: TARDIVE DYSKINESIA
     Route: 048
     Dates: start: 20170605, end: 20170925
  4. INGREZZA [Suspect]
     Active Substance: VALBENAZINE
     Indication: EXTRAPYRAMIDAL DISORDER
  5. HALOPERIDOL. [Concomitant]
     Active Substance: HALOPERIDOL
     Indication: SCHIZOPHRENIA

REACTIONS (4)
  - Cardiac disorder [Unknown]
  - Blood sodium decreased [Unknown]
  - Chest pain [Unknown]
  - Drug ineffective [None]

NARRATIVE: CASE EVENT DATE: 2017
